FAERS Safety Report 15461876 (Version 1)
Quarter: 2018Q4

REPORT INFORMATION
  Report Type: Spontaneous
  Country: US (occurrence: US)
  Receive Date: 20181003
  Receipt Date: 20181003
  Transmission Date: 20190204
  Serious: No
  Sender: FDA-Public Use
  Company Number: US-UPSHER-SMITH LABORATORIES, LLC-2018USL00340

PATIENT
  Age: 62 Year
  Sex: Female
  Weight: 58.96 kg

DRUGS (4)
  1. ALKA-SELTZER [Concomitant]
     Active Substance: ANHYDROUS CITRIC ACID\ASPIRIN\SODIUM BICARBONATE
     Dosage: UNK, AS NEEDED (APPROXIMATELY ONCE EVERY 2 WEEKS)
  2. BACLOFEN. [Suspect]
     Active Substance: BACLOFEN
     Dosage: 5 MG, AS NEEDED
     Route: 048
     Dates: start: 2018
  3. IBUPROFEN. [Concomitant]
     Active Substance: IBUPROFEN
     Dosage: UNK, AS NEEDED
  4. BACLOFEN. [Suspect]
     Active Substance: BACLOFEN
     Indication: MUSCLE SPASMS
     Dosage: 10 MG, AS NEEDED (USUALLY JUST 10 MG DAILY AT NIGHT)
     Route: 048
     Dates: start: 201805

REACTIONS (3)
  - Drug withdrawal syndrome [Not Recovered/Not Resolved]
  - Product substitution issue [Not Recovered/Not Resolved]
  - Drug ineffective [Not Recovered/Not Resolved]

NARRATIVE: CASE EVENT DATE: 201805
